FAERS Safety Report 8377754-5 (Version None)
Quarter: 2012Q2

REPORT INFORMATION
  Report Type: 
  Country: None (occurrence: None)
  Receive Date: 20120522
  Receipt Date: 20120514
  Transmission Date: 20120825
  Serious: Yes (Congenital Anomaly)
  Sender: FDA-Public Use
  Company Number: DE-GLAXOSMITHKLINE-D0075590B

PATIENT
  Sex: Female

DRUGS (4)
  1. HYDROCORTISONE [Concomitant]
     Indication: ADRENOGENITAL SYNDROME
     Dosage: 35MG PER DAY
     Route: 064
     Dates: start: 20100224, end: 20100712
  2. ASTONIN [Concomitant]
     Indication: ADRENOGENITAL SYNDROME
     Dosage: .05MG TWICE PER DAY
     Route: 064
     Dates: start: 20100224, end: 20100712
  3. LAMOTRIGINE [Suspect]
     Indication: EPILEPSY
     Dosage: 325MG PER DAY
     Route: 064
     Dates: start: 20100224, end: 20100712
  4. DEXAMETHASONE SODIUM PHOSPHATE [Concomitant]
     Indication: ADRENOGENITAL SYNDROME
     Route: 064

REACTIONS (7)
  - CEREBRAL VENTRICLE DILATATION [None]
  - RETROGNATHIA [None]
  - TALIPES [None]
  - BRACHYCEPHALY [None]
  - FOETAL EXPOSURE DURING PREGNANCY [None]
  - OESOPHAGEAL ATRESIA [None]
  - CEREBELLAR HYPOPLASIA [None]
